FAERS Safety Report 19735747 (Version 2)
Quarter: 2021Q3

REPORT INFORMATION
  Report Type: Spontaneous
  Country: US (occurrence: US)
  Receive Date: 20210823
  Receipt Date: 20210917
  Transmission Date: 20211014
  Serious: Yes (Other)
  Sender: FDA-Public Use
  Company Number: US-ROCHE-2851873

PATIENT
  Age: 11 Year
  Sex: Male

DRUGS (1)
  1. HEMLIBRA [Suspect]
     Active Substance: EMICIZUMAB-KXWH
     Indication: FACTOR VIII DEFICIENCY
     Dosage: DOSAGE STRENGTH: 105 MG/0.7ML
     Route: 058
     Dates: start: 20200402

REACTIONS (4)
  - Muscle haemorrhage [Unknown]
  - Head injury [Unknown]
  - Haemorrhage [Unknown]
  - Injury [Unknown]

NARRATIVE: CASE EVENT DATE: 20210606
